FAERS Safety Report 5823772-8 (Version None)
Quarter: 2008Q3

REPORT INFORMATION
  Report Type: 
  Country: None (occurrence: None)
  Receive Date: 20080725
  Receipt Date: 20080723
  Transmission Date: 20090109
  Serious: Yes (Hospitalization)
  Sender: FDA-Public Use
  Company Number: FR-MERCK-0807FRA00082

PATIENT
  Age: 85 Year
  Sex: Female

DRUGS (10)
  1. HYZAAR [Suspect]
     Indication: HYPERTENSION
     Route: 048
     Dates: start: 20070101, end: 20080613
  2. VENLAFAXINE HYDROCHLORIDE [Suspect]
     Route: 048
     Dates: start: 20080602, end: 20080613
  3. SPIRONOLACTONE [Suspect]
     Indication: HYPERTENSION
     Route: 048
     Dates: start: 20080516, end: 20080613
  4. AMIODARONE [Suspect]
     Indication: ATRIAL FIBRILLATION
     Route: 048
     Dates: start: 20070101, end: 20080612
  5. RABEPRAZOLE SODIUM [Concomitant]
     Route: 048
     Dates: start: 20070101
  6. TRAMADOL HYDROCHLORIDE [Concomitant]
     Indication: PAIN
     Route: 048
     Dates: start: 20080513, end: 20080613
  7. LERCANIDIPINE HYDROCHLORIDE [Concomitant]
     Indication: HYPERTENSION
     Route: 048
     Dates: start: 20070101
  8. METOPIMAZINE [Concomitant]
     Route: 048
     Dates: end: 20080606
  9. DESLORATADINE [Concomitant]
     Route: 048
  10. LACTULOSE [Concomitant]
     Route: 048
     Dates: end: 20080606

REACTIONS (5)
  - FALL [None]
  - GENERAL PHYSICAL HEALTH DETERIORATION [None]
  - HYPERKALAEMIA [None]
  - HYPONATRAEMIA [None]
  - MALAISE [None]
